FAERS Safety Report 10765213 (Version 2)
Quarter: 2016Q2

REPORT INFORMATION
  Report Type: Spontaneous
  Country: US (occurrence: US)
  Receive Date: 20150205
  Receipt Date: 20160530
  Transmission Date: 20160815
  Serious: Yes (Other)
  Sender: FDA-Public Use
  Company Number: US-JNJFOC-20150200268

PATIENT
  Age: 51 Year
  Sex: Female

DRUGS (5)
  1. BUDESONIDE. [Suspect]
     Active Substance: BUDESONIDE
     Indication: PRODUCT USED FOR UNKNOWN INDICATION
     Route: 065
     Dates: end: 20150113
  2. ADVAIR HFA [Concomitant]
     Active Substance: FLUTICASONE PROPIONATE\SALMETEROL XINAFOATE
     Route: 065
  3. ENTYVIO [Suspect]
     Active Substance: VEDOLIZUMAB
     Indication: CROHN^S DISEASE
     Route: 042
     Dates: start: 2014
  4. TRAMADOL HYDROCHLORIDE. [Suspect]
     Active Substance: TRAMADOL HYDROCHLORIDE
     Indication: PRODUCT USED FOR UNKNOWN INDICATION
     Route: 065
  5. SALMETEROL XINAFOATE [Concomitant]
     Active Substance: SALMETEROL XINAFOATE
     Route: 065

REACTIONS (16)
  - Bone pain [Recovered/Resolved]
  - Haematochezia [Unknown]
  - Viral infection [Unknown]
  - Nasal congestion [Unknown]
  - Arthralgia [Recovered/Resolved]
  - Psychotic disorder [Unknown]
  - Fatigue [Unknown]
  - Pain [Unknown]
  - Suicidal ideation [Unknown]
  - Cough [Unknown]
  - Malaise [Unknown]
  - Musculoskeletal discomfort [Unknown]
  - Abdominal pain [Unknown]
  - Wheezing [Unknown]
  - Nausea [Recovered/Resolved]
  - Headache [Unknown]

NARRATIVE: CASE EVENT DATE: 20141223
